FAERS Safety Report 6838533-0 (Version None)
Quarter: 2010Q3

REPORT INFORMATION
  Report Type: 
  Country: None (occurrence: None)
  Receive Date: 20100713
  Receipt Date: 20070615
  Transmission Date: 20110219
  Serious: No
  Sender: FDA-Public Use
  Company Number: US-PFIZER INC-2007049977

PATIENT
  Sex: Female
  Weight: 65.909 kg

DRUGS (7)
  1. CHANTIX [Suspect]
     Indication: SMOKING CESSATION THERAPY
     Dates: start: 20070101
  2. MULTI-VITAMINS [Concomitant]
  3. LEVOTHYROXINE SODIUM [Concomitant]
  4. LEXAPRO [Concomitant]
  5. PREVACID [Concomitant]
  6. ACETYLSALICYLIC ACID [Concomitant]
  7. VITAMIN C [Concomitant]

REACTIONS (2)
  - NAUSEA [None]
  - VOMITING [None]
